FAERS Safety Report 24690705 (Version 3)
Quarter: 2025Q2

REPORT INFORMATION
  Report Type: Spontaneous
  Country: US (occurrence: US)
  Receive Date: 20241203
  Receipt Date: 20250606
  Transmission Date: 20250717
  Serious: No
  Sender: NOVEN
  Company Number: US-NOVEN PHARMACEUTICALS, INC.-2024-NOV-US000623

PATIENT
  Sex: Female

DRUGS (3)
  1. ESTRADIOL [Suspect]
     Active Substance: ESTRADIOL
     Indication: Menopause
     Route: 062
  2. Hydroxy [Concomitant]
     Indication: Product used for unknown indication
     Route: 065
  3. METOPROLOL [Concomitant]
     Active Substance: METOPROLOL
     Indication: Product used for unknown indication
     Route: 065

REACTIONS (4)
  - Adhesive tape use [Unknown]
  - Wrong technique in product usage process [Unknown]
  - Product adhesion issue [Not Recovered/Not Resolved]
  - No adverse event [Unknown]
